FAERS Safety Report 8159877-9 (Version None)
Quarter: 2012Q1

REPORT INFORMATION
  Report Type: 
  Country: None (occurrence: None)
  Receive Date: 20120223
  Receipt Date: 20120220
  Transmission Date: 20120608
  Serious: Yes (Other)
  Sender: FDA-Public Use
  Company Number: DE-AMGEN-DEUSP2011063375

PATIENT
  Age: 63 Year
  Sex: Female

DRUGS (5)
  1. PREDNISOLONE [Suspect]
     Indication: RHEUMATOID ARTHRITIS
     Dosage: 5 MG, QD
     Route: 048
     Dates: start: 20110301, end: 20120201
  2. DEKRISTOL [Concomitant]
     Indication: VITAMIN D DEFICIENCY
     Dosage: 20000 IU, QWK
     Dates: start: 20110201
  3. PROLIA [Suspect]
     Indication: OSTEOPOROSIS
     Dosage: 60 MG, Q6MO
     Route: 058
     Dates: start: 20110304, end: 20111001
  4. METHOTREXATE [Concomitant]
     Indication: RHEUMATOID ARTHRITIS
     Dosage: 15 UNK, QWK
     Route: 058
  5. CALCIUM [Concomitant]
     Indication: OSTEOPOROSIS
     Dosage: 500 MG, QD
     Route: 048
     Dates: start: 20101001

REACTIONS (3)
  - DRUG INEFFECTIVE [None]
  - BONE DENSITY DECREASED [None]
  - FRACTURE [None]
